FAERS Safety Report 10157696 (Version 1)
Quarter: 2014Q2

REPORT INFORMATION
  Report Type: Spontaneous
  Country: US (occurrence: US)
  Receive Date: 20140507
  Receipt Date: 20140507
  Transmission Date: 20141212
  Serious: No
  Sender: FDA-Public Use
  Company Number: US-JNJFOC-20140406762

PATIENT
  Age: 45 Year
  Sex: Female

DRUGS (5)
  1. INVEGA SUSTENNA [Suspect]
     Indication: SCHIZOAFFECTIVE DISORDER
     Route: 030
     Dates: start: 20140325, end: 20140325
  2. PAXIL [Concomitant]
     Route: 065
  3. BENZTROPINE [Concomitant]
     Route: 065
  4. CLONAZEPAM [Concomitant]
     Route: 065
  5. CARBAMAZEPINE [Concomitant]
     Route: 065

REACTIONS (1)
  - Drug dose omission [Not Recovered/Not Resolved]
